FAERS Safety Report 4754974-X (Version None)
Quarter: 2005Q3

REPORT INFORMATION
  Report Type: 
  Country: None (occurrence: None)
  Receive Date: 20050829
  Receipt Date: 20050210
  Transmission Date: 20060218
  Serious: Yes (Other)
  Sender: FDA-Public Use
  Company Number: PHEH2005US01952

PATIENT
  Age: 56 Year
  Sex: Male

DRUGS (5)
  1. GLEEVEC [Suspect]
     Indication: CHRONIC MYELOID LEUKAEMIA
     Dosage: 600 MG, QD
     Route: 048
     Dates: start: 20020101, end: 20050201
  2. GLEEVEC [Suspect]
     Dosage: 300 MG, QD
     Route: 048
     Dates: start: 20050201
  3. GLEEVEC [Suspect]
     Dosage: 400 MG, QD
     Route: 048
  4. POTASSIUM [Concomitant]
  5. ANTIBIOTICS [Concomitant]

REACTIONS (30)
  - ABDOMINAL PAIN [None]
  - ABDOMINAL PAIN UPPER [None]
  - ASTHENIA [None]
  - BACTERIAL FOOD POISONING [None]
  - BLOOD CREATINE PHOSPHOKINASE INCREASED [None]
  - BLOOD PRESSURE INCREASED [None]
  - BURNING SENSATION [None]
  - CHEST PAIN [None]
  - DEPRESSION [None]
  - DIZZINESS [None]
  - ERYTHEMA [None]
  - FACE OEDEMA [None]
  - FATIGUE [None]
  - FLUID RETENTION [None]
  - HEADACHE [None]
  - INFECTION [None]
  - LEUKOPENIA [None]
  - LIMB DISCOMFORT [None]
  - MYALGIA [None]
  - OPEN WOUND [None]
  - PAIN [None]
  - PARAESTHESIA [None]
  - POOR QUALITY SLEEP [None]
  - PRURITUS GENERALISED [None]
  - RASH [None]
  - SKIN INFLAMMATION [None]
  - THROAT TIGHTNESS [None]
  - WEIGHT INCREASED [None]
  - WOUND COMPLICATION [None]
  - WOUND HAEMORRHAGE [None]
